FAERS Safety Report 12629597 (Version 4)
Quarter: 2021Q4

REPORT INFORMATION
  Report Type: Spontaneous
  Country: FR (occurrence: FR)
  Receive Date: 20160808
  Receipt Date: 20211102
  Transmission Date: 20220303
  Serious: Yes (Hospitalization, Other)
  Sender: FDA-Public Use
  Company Number: FR-GLAXOSMITHKLINE-FR2016GSK114009

PATIENT
  Sex: Male

DRUGS (3)
  1. LAMICTAL [Suspect]
     Active Substance: LAMOTRIGINE
     Indication: Epilepsy
     Dosage: UNK
     Dates: start: 2014
  2. KEPPRA [Suspect]
     Active Substance: LEVETIRACETAM
     Indication: Epilepsy
     Dosage: 300 MG, BID
     Dates: start: 2015
  3. KEPPRA [Suspect]
     Active Substance: LEVETIRACETAM
     Dosage: 200 MG, BID

REACTIONS (33)
  - Poisoning [Recovered/Resolved]
  - Toxicity to various agents [Recovered/Resolved]
  - Munchausen^s syndrome [Unknown]
  - Tremor neonatal [Recovered/Resolved]
  - Dyskinesia [Recovered/Resolved]
  - Poor weight gain neonatal [Unknown]
  - Growth retardation [Unknown]
  - Neonatal seizure [Recovered/Resolved]
  - Gastroenteritis [Recovered/Resolved]
  - Clonus [Recovered/Resolved]
  - Myoclonus [Recovered/Resolved]
  - Respiratory disorder [Unknown]
  - Gastrointestinal disorder [Unknown]
  - Infection [Unknown]
  - Ear disorder [Unknown]
  - Nasal disorder [Unknown]
  - Pharyngeal disorder [Unknown]
  - Seizure [Recovered/Resolved]
  - Epilepsy [Recovered/Resolved]
  - Generalised tonic-clonic seizure [Unknown]
  - Eye movement disorder [Recovered/Resolved]
  - Tongue biting [Recovered/Resolved]
  - Condition aggravated [Recovered/Resolved]
  - Eyelid myoclonus [Recovered/Resolved]
  - Ataxia [Recovered/Resolved]
  - Asthenia [Recovered/Resolved]
  - Drug screen positive [Unknown]
  - Paradoxical drug reaction [Recovered/Resolved]
  - Overdose [Unknown]
  - Wrong product administered [Unknown]
  - Prescription drug used without a prescription [Unknown]
  - Off label use [Unknown]
  - Foetal exposure during pregnancy [Unknown]
